FAERS Safety Report 8343742-8 (Version None)
Quarter: 2012Q2

REPORT INFORMATION
  Report Type: 
  Country: None (occurrence: None)
  Receive Date: 20120508
  Receipt Date: 20120508
  Transmission Date: 20120825
  Serious: Yes (Disabling, Other)
  Sender: FDA-Public Use
  Company Number: None

PATIENT
  Sex: Female
  Weight: 49.895 kg

DRUGS (1)
  1. MIRENA [Suspect]
     Indication: CONTRACEPTION
     Dates: start: 20090801, end: 20120407

REACTIONS (7)
  - BREAST MASS [None]
  - DEVICE DISLOCATION [None]
  - CERVIX CARCINOMA [None]
  - PATIENT-DEVICE INCOMPATIBILITY [None]
  - PRODUCT QUALITY ISSUE [None]
  - URINARY TRACT INFECTION [None]
  - KIDNEY INFECTION [None]
